FAERS Safety Report 5636941-7 (Version None)
Quarter: 2008Q1

REPORT INFORMATION
  Report Type: 
  Country: None (occurrence: None)
  Receive Date: 20080225
  Receipt Date: 20070116
  Transmission Date: 20080703
  Serious: No
  Sender: FDA-Public Use
  Company Number: US-BRISTOL-MYERS SQUIBB COMPANY-13644489

PATIENT
  Age: 44 Year
  Sex: Male
  Weight: 116 kg

DRUGS (2)
  1. METFORMIN HCL [Suspect]
     Indication: DIABETES MELLITUS
     Dates: start: 19990101
  2. GLIPIZIDE [Concomitant]

REACTIONS (12)
  - AMNESIA [None]
  - DIZZINESS [None]
  - EYE PAIN [None]
  - HEADACHE [None]
  - HYPERACUSIS [None]
  - HYPERAESTHESIA [None]
  - MIGRAINE [None]
  - MUSCLE TIGHTNESS [None]
  - NAUSEA [None]
  - PHOTOSENSITIVITY REACTION [None]
  - RESTLESSNESS [None]
  - VISION BLURRED [None]
